FAERS Safety Report 6775500-X (Version None)
Quarter: 2010Q2

REPORT INFORMATION
  Report Type: 
  Country: None (occurrence: None)
  Receive Date: 20100617
  Receipt Date: 20100614
  Transmission Date: 20101027
  Serious: Yes (Death, Hospitalization)
  Sender: FDA-Public Use
  Company Number: BG-BRISTOL-MYERS SQUIBB COMPANY-15146616

PATIENT
  Age: 25 Year
  Sex: Male

DRUGS (1)
  1. ABILIFY [Suspect]
     Indication: SCHIZOPHRENIA
     Route: 048

REACTIONS (6)
  - CARDIAC FAILURE ACUTE [None]
  - COMA [None]
  - COMPLETED SUICIDE [None]
  - CONDITION AGGRAVATED [None]
  - PSYCHOTIC DISORDER [None]
  - SCHIZOPHRENIA [None]
